FAERS Safety Report 15339861 (Version 2)
Quarter: 2018Q3

REPORT INFORMATION
  Report Type: Report from Study
  Country: US (occurrence: US)
  Receive Date: 20180831
  Receipt Date: 20180912
  Transmission Date: 20181010
  Serious: Yes (Hospitalization)
  Sender: FDA-Public Use
  Company Number: US-PFIZER INC-2018338490

PATIENT
  Age: 68 Year
  Sex: Female
  Weight: 63.5 kg

DRUGS (21)
  1. DILAUDID [Concomitant]
     Active Substance: HYDROMORPHONE HYDROCHLORIDE
     Dosage: 8 MG, UNK
     Dates: start: 20170101
  2. ALPRAZOLAM. [Concomitant]
     Active Substance: ALPRAZOLAM
     Dosage: 1 MG, UNK
     Dates: start: 20170101
  3. CETUXIMAB. [Suspect]
     Active Substance: CETUXIMAB
     Indication: SQUAMOUS CELL CARCINOMA OF HEAD AND NECK
     Dosage: 250 MG/M2, WEEKLY
     Route: 042
     Dates: start: 20180702, end: 20180813
  4. FIORICET [Concomitant]
     Active Substance: ACETAMINOPHEN\BUTALBITAL\CAFFEINE
     Dosage: 1 TAB, UNK
     Dates: start: 20141126
  5. XANAX [Concomitant]
     Active Substance: ALPRAZOLAM
     Dosage: 1 MG, UNK
     Dates: start: 20141002
  6. AMITRIPTYLINE [Concomitant]
     Active Substance: AMITRIPTYLINE
     Dosage: 50 MG, UNK
     Dates: start: 20141126
  7. PALBOCICLIB [Suspect]
     Active Substance: PALBOCICLIB
     Indication: SQUAMOUS CELL CARCINOMA OF HEAD AND NECK
     Dosage: 125 MG, 1X/DAY, DAY 1?21, (FEEDING TUBE)
     Route: 048
     Dates: start: 20180702, end: 20180817
  8. DILAUDID [Concomitant]
     Active Substance: HYDROMORPHONE HYDROCHLORIDE
     Dosage: 3 MG, UNK
     Dates: start: 20141126
  9. QUETIAPINE FUMARATE. [Concomitant]
     Active Substance: QUETIAPINE FUMARATE
     Dosage: 100 MG, UNK
     Dates: start: 20160203
  10. SYMBICORT [Concomitant]
     Active Substance: BUDESONIDE\FORMOTEROL FUMARATE DIHYDRATE
     Dosage: [BUDESONIDE 160 MCG]/[FORMOTEROL FUMARATE 4.5 MCG]
     Dates: start: 20170509
  11. PROMETHAZINE [Concomitant]
     Active Substance: PROMETHAZINE\PROMETHAZINE HYDROCHLORIDE
     Dosage: 12.5 MG, UNK
     Dates: start: 20141010
  12. PROMETHAZINE [Concomitant]
     Active Substance: PROMETHAZINE\PROMETHAZINE HYDROCHLORIDE
     Dosage: 25 MG, UNK
     Dates: start: 20170513
  13. SERTRALINE [Concomitant]
     Active Substance: SERTRALINE HYDROCHLORIDE
     Dosage: 50 MG, UNK
     Dates: start: 20180806
  14. ABILIFY [Concomitant]
     Active Substance: ARIPIPRAZOLE
     Dosage: 15 MG, UNK
     Dates: start: 20180510
  15. FOLIC ACID. [Concomitant]
     Active Substance: FOLIC ACID
     Dosage: 0.4 MG, UNK
  16. SYNTHROID [Concomitant]
     Active Substance: LEVOTHYROXINE SODIUM
     Dosage: 175 MCG, UNK
  17. LEVOTHYROXINE. [Concomitant]
     Active Substance: LEVOTHYROXINE
     Dosage: 175 MCG, UNK
     Dates: start: 20160203
  18. ABILIFY [Concomitant]
     Active Substance: ARIPIPRAZOLE
     Dosage: 10 MG, UNK
     Dates: start: 2017
  19. DEXAMETHASONE. [Concomitant]
     Active Substance: DEXAMETHASONE
     Dosage: 4 MG, UNK
     Dates: start: 20180709
  20. ONDANSETRON [Concomitant]
     Active Substance: ONDANSETRON
     Dosage: 8 MG, UNK
     Dates: start: 20141002
  21. TOPIRAMATE. [Concomitant]
     Active Substance: TOPIRAMATE
     Dosage: 50 MG, UNK

REACTIONS (1)
  - Lung infection [Unknown]

NARRATIVE: CASE EVENT DATE: 20180817
